FAERS Safety Report 6889596-8 (Version None)
Quarter: 2010Q3

REPORT INFORMATION
  Report Type: 
  Country: None (occurrence: None)
  Receive Date: 20100730
  Receipt Date: 20080318
  Transmission Date: 20110219
  Serious: No
  Sender: FDA-Public Use
  Company Number: US-PFIZER INC-2008025771

PATIENT
  Sex: Female
  Weight: 89.545 kg

DRUGS (3)
  1. LIPITOR [Suspect]
     Indication: BLOOD CHOLESTEROL INCREASED
     Dates: start: 20080304
  2. FLOMAX [Concomitant]
  3. DITROPAN [Concomitant]
     Indication: CYSTITIS INTERSTITIAL

REACTIONS (9)
  - ABNORMAL SENSATION IN EYE [None]
  - BLADDER DISCOMFORT [None]
  - BLADDER PAIN [None]
  - FATIGUE [None]
  - INFLUENZA [None]
  - MYALGIA [None]
  - PAIN IN EXTREMITY [None]
  - PYREXIA [None]
  - VISION BLURRED [None]
